FAERS Safety Report 18367371 (Version 1)
Quarter: 2020Q4

REPORT INFORMATION
  Report Type: Spontaneous
  Country: RU (occurrence: RU)
  Receive Date: 20201009
  Receipt Date: 20201009
  Transmission Date: 20210114
  Serious: Yes (Other)
  Sender: FDA-Public Use
  Company Number: RU-BAYER-2020-214388

PATIENT
  Age: 46 Year
  Sex: Female

DRUGS (1)
  1. QLAIRA [Suspect]
     Active Substance: DIENOGEST\ESTRADIOL VALERATE
     Dosage: UNK
     Route: 048
     Dates: start: 2017

REACTIONS (2)
  - Blood thyroid stimulating hormone increased [None]
  - Hypothyroidism [None]

NARRATIVE: CASE EVENT DATE: 2020
